FAERS Safety Report 8011575-8 (Version None)
Quarter: 2011Q4

REPORT INFORMATION
  Report Type: 
  Country: None (occurrence: None)
  Receive Date: 20111228
  Receipt Date: 20111220
  Transmission Date: 20120403
  Serious: Yes (Hospitalization)
  Sender: FDA-Public Use
  Company Number: DE-JNJFOC-20111208812

PATIENT
  Age: 25 Year
  Sex: Female
  Weight: 101 kg

DRUGS (6)
  1. ALL OTHER THERAPEUTIC PRODUCTS [Concomitant]
     Indication: COLITIS ULCERATIVE
     Route: 048
  2. PANTOSIL [Concomitant]
     Indication: PROPHYLAXIS
     Route: 048
  3. PREDNISONE TAB [Concomitant]
     Indication: COLITIS ULCERATIVE
     Route: 048
  4. COTRIM DS [Concomitant]
     Route: 048
  5. REMICADE [Suspect]
     Indication: COLITIS ULCERATIVE
     Route: 042
     Dates: start: 20110414
  6. VALETTE [Concomitant]
     Indication: CONTRACEPTION
     Route: 048

REACTIONS (1)
  - ACUTE PSYCHOSIS [None]
